FAERS Safety Report 25676332 (Version 1)
Quarter: 2025Q3

REPORT INFORMATION
  Report Type: Spontaneous
  Country: US (occurrence: None)
  Receive Date: 20250813
  Receipt Date: 20250813
  Transmission Date: 20251020
  Serious: Yes (Other)
  Sender: FDA-CTU
  Company Number: None

PATIENT
  Sex: Female
  Weight: 112.5 kg

DRUGS (4)
  1. SEMAGLUTIDE [Suspect]
     Active Substance: SEMAGLUTIDE
     Indication: Weight decreased
     Dosage: OTHER FREQUENCY : ONCE A WEEK;?
     Route: 030
     Dates: start: 20240701, end: 20241001
  2. SUMATRIPTAN [Concomitant]
     Active Substance: SUMATRIPTAN
  3. Lamitical [Concomitant]
  4. MAGNESIUM GLYCINATE [Concomitant]
     Active Substance: MAGNESIUM GLYCINATE

REACTIONS (4)
  - Obsessive-compulsive disorder [None]
  - Condition aggravated [None]
  - Morbid thoughts [None]
  - Paranoia [None]
